FAERS Safety Report 9752187 (Version 1)
Quarter: 2013Q4

REPORT INFORMATION
  Report Type: Spontaneous
  Country: DE (occurrence: None)
  Receive Date: 20131211
  Receipt Date: 20131211
  Transmission Date: 20140711
  Serious: Yes (Other)
  Sender: FDA-Public Use
  Company Number: SYM-2013-13608

PATIENT
  Age: 37 Year
  Sex: Male

DRUGS (3)
  1. ELONTRIL [Suspect]
     Indication: PRODUCT USED FOR UNKNOWN INDICATION
     Dates: start: 201210, end: 2013
  2. QUILONUM RETARD [Suspect]
     Indication: PRODUCT USED FOR UNKNOWN INDICATION
     Route: 048
     Dates: start: 20110501, end: 20120915
  3. ZYPREXA [Suspect]
     Route: 048
     Dates: start: 20120510, end: 20130131

REACTIONS (5)
  - Weight increased [None]
  - Oedema [None]
  - Fatigue [None]
  - Depression [None]
  - Drug ineffective [None]
